FAERS Safety Report 7367405-0 (Version None)
Quarter: 2011Q1

REPORT INFORMATION
  Report Type: 
  Country: None (occurrence: None)
  Receive Date: 20110322
  Receipt Date: 20110317
  Transmission Date: 20110831
  Serious: Yes (Other)
  Sender: FDA-Public Use
  Company Number: US-PFIZER INC-2011043579

PATIENT
  Sex: Male
  Weight: 102 kg

DRUGS (4)
  1. LIPITOR [Concomitant]
     Dosage: UNK
  2. HYDROCHLOROTHIAZIDE [Concomitant]
     Dosage: UNK
  3. CHANTIX [Suspect]
     Indication: SMOKING CESSATION THERAPY
     Dosage: UNK
     Route: 048
     Dates: start: 20110214, end: 20110225
  4. DIOVAN HCT [Concomitant]
     Dosage: UNK

REACTIONS (4)
  - PARAESTHESIA [None]
  - BALANCE DISORDER [None]
  - SENSORY LOSS [None]
  - MUSCULAR WEAKNESS [None]
